FAERS Safety Report 9173331 (Version 1)
Quarter: 2013Q1

REPORT INFORMATION
  Report Type: Spontaneous
  Country: US (occurrence: US)
  Receive Date: 20130320
  Receipt Date: 20130320
  Transmission Date: 20140127
  Serious: Yes (Other)
  Sender: FDA-Public Use
  Company Number: US-JNJFOC-20130206046

PATIENT
  Age: 27 Year
  Sex: Male
  Weight: 86.18 kg

DRUGS (2)
  1. ROGAINE FOR MEN EXTRA STRENGTH [Suspect]
     Route: 061
  2. ROGAINE FOR MEN EXTRA STRENGTH [Suspect]
     Indication: ALOPECIA
     Route: 061
     Dates: end: 20130205

REACTIONS (3)
  - Hallucination, auditory [Unknown]
  - Paranoia [Unknown]
  - Anxiety [Unknown]
